FAERS Safety Report 20437528 (Version 2)
Quarter: 2022Q1

REPORT INFORMATION
  Report Type: Spontaneous
  Country: CA (occurrence: CA)
  Receive Date: 20220207
  Receipt Date: 20220209
  Transmission Date: 20220423
  Serious: Yes (Other)
  Sender: FDA-Public Use
  Company Number: CA-MLMSERVICE-20220120-3326927-1

PATIENT
  Age: 17 Year
  Sex: Female

DRUGS (4)
  1. TESTOSTERONE [Suspect]
     Active Substance: TESTOSTERONE
     Indication: Transgender hormonal therapy
     Dosage: UNK
     Route: 058
  2. TESTOSTERONE [Suspect]
     Active Substance: TESTOSTERONE
     Dosage: 70 MG, WEEKLY (1 MONTH BEFORE OUR EXAM IT HAD BEEN INCREASED)
     Route: 058
  3. TESTOSTERONE [Suspect]
     Active Substance: TESTOSTERONE
     Dosage: UNK (ADJUSTED FOR AGE GRADUALLY)
     Route: 058
  4. TESTOSTERONE [Suspect]
     Active Substance: TESTOSTERONE
     Dosage: 50 MG, WEEKLY

REACTIONS (4)
  - Off label use [Unknown]
  - Off label use [Unknown]
  - Idiopathic intracranial hypertension [Recovered/Resolved]
  - Papilloedema [Recovered/Resolved]
